FAERS Safety Report 8880058 (Version 2)
Quarter: 2012Q4

REPORT INFORMATION
  Report Type: 
  Country: US (occurrence: US)
  Receive Date: 20121101
  Receipt Date: 20121107
  Transmission Date: 20130627
  Serious: Yes (Other)
  Sender: FDA-Public Use
  Company Number: US-PERRIGO-12US009274

PATIENT
  Age: 54 Year
  Sex: Female
  Weight: 81.63 kg

DRUGS (11)
  1. TUSSIN DM LIQ 359 [Suspect]
     Indication: COUGH
     Dosage: UNK, prn
     Route: 048
     Dates: start: 20121016, end: 20121022
  2. METHADONE [Concomitant]
     Indication: PAIN
     Dosage: UNK, UNK
     Route: 048
  3. OXYCODONE [Concomitant]
     Indication: PAIN
     Dosage: UNK, UNK
     Route: 048
  4. SOMA [Concomitant]
     Indication: MUSCLE RELAXANT THERAPY
     Dosage: UNK, UNK
     Route: 048
  5. ZOLPIDEM [Concomitant]
     Indication: SLEEP DISORDER
     Dosage: 10 mg, qd
     Route: 048
  6. REQUIP [Concomitant]
     Indication: RESTLESS LEGS SYNDROME
     Dosage: UNK, UNK
     Route: 048
  7. XANAX [Concomitant]
     Indication: NERVOUSNESS
     Dosage: 1 mg, UNK
     Route: 048
     Dates: start: 2011
  8. WELLBUTRIN [Concomitant]
     Indication: DEPRESSION
     Dosage: UNK, UNK
     Route: 048
  9. NORTRIPTYLINE [Concomitant]
     Indication: SLEEP DISORDER
     Dosage: 25 mg, qd
     Route: 048
  10. SPIRIVA [Concomitant]
     Indication: ASTHMA
     Dosage: UNK, prn
     Route: 055
     Dates: start: 20121001
  11. ADVAIR [Concomitant]
     Indication: ASTHMA
     Dosage: UNK, BID
     Route: 055
     Dates: start: 20121001

REACTIONS (2)
  - Fall [Recovered/Resolved]
  - Wrong technique in drug usage process [Recovered/Resolved]
